FAERS Safety Report 8542573-3 (Version None)
Quarter: 2012Q3

REPORT INFORMATION
  Report Type: 
  Country: None (occurrence: None)
  Receive Date: 20120726
  Receipt Date: 20120717
  Transmission Date: 20120928
  Serious: Yes (Hospitalization, Other)
  Sender: FDA-Public Use
  Company Number: US-ABBOTT-12P-163-0957510-00

PATIENT
  Sex: Female

DRUGS (1)
  1. HUMIRA [Suspect]
     Indication: RHEUMATOID ARTHRITIS
     Route: 058

REACTIONS (6)
  - COUGH [None]
  - BREAST CANCER [None]
  - PNEUMONIA [None]
  - FATIGUE [None]
  - HISTOPLASMOSIS [None]
  - PULMONARY GRANULOMA [None]
